FAERS Safety Report 19494697 (Version 6)
Quarter: 2021Q4

REPORT INFORMATION
  Report Type: Report from Study
  Country: US (occurrence: US)
  Receive Date: 20210705
  Receipt Date: 20211028
  Transmission Date: 20220304
  Serious: Yes (Hospitalization, Other)
  Sender: FDA-Public Use
  Company Number: NVSC2021US142319

PATIENT
  Age: 40 Year
  Sex: Male

DRUGS (2)
  1. COSENTYX [Suspect]
     Active Substance: SECUKINUMAB
     Indication: Psoriasis
     Dosage: 150 MG QW
     Route: 058
     Dates: start: 202005
  2. COSENTYX [Suspect]
     Active Substance: SECUKINUMAB
     Indication: Psoriatic arthropathy

REACTIONS (8)
  - COVID-19 [Recovered/Resolved]
  - Arthritis [Recovered/Resolved]
  - Psoriatic arthropathy [Unknown]
  - Back pain [Unknown]
  - Psoriasis [Unknown]
  - Injection site pain [Unknown]
  - Wrong technique in device usage process [Unknown]
  - Drug ineffective [Recovered/Resolved]

NARRATIVE: CASE EVENT DATE: 20201107
